FAERS Safety Report 8036997-0 (Version None)
Quarter: 2012Q1

REPORT INFORMATION
  Report Type: 
  Country: None (occurrence: None)
  Receive Date: 20120111
  Receipt Date: 20120109
  Transmission Date: 20120608
  Serious: No
  Sender: FDA-Public Use
  Company Number: US-PFIZER INC-2012007236

PATIENT
  Sex: Male
  Weight: 81.633 kg

DRUGS (7)
  1. METFORMIN [Concomitant]
     Indication: DIABETES MELLITUS
     Dosage: 850 MG, 3X/DAY
  2. CHANTIX [Suspect]
     Dosage: 1 MG, DAILY
     Route: 048
     Dates: start: 20120101
  3. ACTOS [Concomitant]
     Indication: DIABETES MELLITUS
     Dosage: 30 MG, DAILY
     Route: 048
  4. CHANTIX [Suspect]
     Indication: SMOKING CESSATION THERAPY
     Dosage: UNK
     Route: 048
     Dates: start: 20090101
  5. INSULIN [Concomitant]
     Indication: DIABETES MELLITUS
     Dosage: 15 MG, 2X/DAY
  6. LOVASTATIN [Concomitant]
     Indication: BLOOD CHOLESTEROL ABNORMAL
     Dosage: 40 MG, DAILY
  7. PAXIL [Concomitant]
     Dosage: 40 MG, DAILY
     Route: 048

REACTIONS (2)
  - ABNORMAL DREAMS [None]
  - INAPPROPRIATE SCHEDULE OF DRUG ADMINISTRATION [None]
